FAERS Safety Report 12784312 (Version 1)
Quarter: 2016Q3

REPORT INFORMATION
  Report Type: Spontaneous
  Country: BR (occurrence: BR)
  Receive Date: 20160927
  Receipt Date: 20160927
  Transmission Date: 20161109
  Serious: Yes (Death, Other)
  Sender: FDA-Public Use
  Company Number: BR-BAYER-2016-182847

PATIENT
  Age: 78 Year
  Sex: Female

DRUGS (1)
  1. MAGNEVISTAN [Suspect]
     Active Substance: GADOPENTETATE DIMEGLUMINE
     Dosage: UNK
     Dates: start: 20160919, end: 20160919

REACTIONS (4)
  - Contrast media allergy [Not Recovered/Not Resolved]
  - Bronchospasm [Not Recovered/Not Resolved]
  - Acute pulmonary oedema [Not Recovered/Not Resolved]
  - Acute myocardial infarction [Fatal]

NARRATIVE: CASE EVENT DATE: 20160919
